FAERS Safety Report 15744686 (Version 1)
Quarter: 2018Q4

REPORT INFORMATION
  Report Type: Spontaneous
  Country: FR (occurrence: FR)
  Receive Date: 20181220
  Receipt Date: 20181220
  Transmission Date: 20190205
  Serious: Yes (Other)
  Sender: FDA-Public Use
  Company Number: FR-009507513-1806FRA006588

PATIENT
  Sex: Male

DRUGS (1)
  1. FINASTERIDE. [Suspect]
     Active Substance: FINASTERIDE
     Indication: ALOPECIA
     Dosage: 1 MG

REACTIONS (3)
  - Sexual dysfunction [Not Recovered/Not Resolved]
  - Physical disability [Not Recovered/Not Resolved]
  - Cognitive disorder [Not Recovered/Not Resolved]
